FAERS Safety Report 8394282 (Version 2)
Quarter: 2013Q3

REPORT INFORMATION
  Report Type: Spontaneous
  Country: US (occurrence: US)
  Receive Date: 20120207
  Receipt Date: 20130926
  Transmission Date: 20140515
  Serious: Yes (Other)
  Sender: FDA-Public Use
  Company Number: US-PFIZER INC-2012030402

PATIENT
  Age: 47 Year
  Sex: Female

DRUGS (1)
  1. LYRICA [Suspect]
     Indication: SPINAL COLUMN STENOSIS
     Dosage: 150 MG, 3X/DAY
     Route: 048

REACTIONS (5)
  - Off label use [Unknown]
  - Hypertension [Unknown]
  - Stress [Unknown]
  - Headache [Unknown]
  - Therapeutic response unexpected [Unknown]
